FAERS Safety Report 5023795-5 (Version None)
Quarter: 2006Q2

REPORT INFORMATION
  Report Type: 
  Country: None (occurrence: None)
  Receive Date: 20060606
  Receipt Date: 20060526
  Transmission Date: 20061013
  Serious: Yes (Other)
  Sender: FDA-Public Use
  Company Number: HQWYE599917NOV05

PATIENT
  Age: 40 Year
  Sex: Female

DRUGS (6)
  1. RAPAMUNE [Suspect]
     Indication: PROPHYLAXIS AGAINST TRANSPLANT REJECTION
     Dosage: 2 MG 1X PER 1 DAY ORAL
     Route: 048
     Dates: start: 20041201
  2. PREDNISONE TAB [Concomitant]
  3. ........ [Concomitant]
  4. CYCLOSPORINE [Concomitant]
  5. .............. [Concomitant]
  6. ........... [Concomitant]

REACTIONS (1)
  - KIDNEY TRANSPLANT REJECTION [None]
